FAERS Safety Report 10612922 (Version 2)
Quarter: 2015Q1

REPORT INFORMATION
  Report Type: Spontaneous
  Country: JP (occurrence: JP)
  Receive Date: 20141127
  Receipt Date: 20150206
  Transmission Date: 20150720
  Serious: No
  Sender: FDA-Public Use
  Company Number: JP-ELI_LILLY_AND_COMPANY-JP201411008103

PATIENT
  Age: 61 Year
  Sex: Male
  Weight: 60 kg

DRUGS (2)
  1. GEMZAR [Suspect]
     Active Substance: GEMCITABINE HYDROCHLORIDE
     Indication: METASTASES TO LUNG
     Dosage: 1200 MG, OTHER
     Route: 042
     Dates: start: 20101004, end: 20101018
  2. NAVELBINE [Suspect]
     Active Substance: VINORELBINE TARTRATE
     Indication: METASTASES TO LUNG
     Dosage: 35 MG, UNK
     Route: 065
     Dates: start: 20101004, end: 20101018

REACTIONS (1)
  - Vasculitis [Recovered/Resolved]

NARRATIVE: CASE EVENT DATE: 20101021
